FAERS Safety Report 6625660-6 (Version None)
Quarter: 2010Q1

REPORT INFORMATION
  Report Type: 
  Country: None (occurrence: None)
  Receive Date: 20100310
  Receipt Date: 20100223
  Transmission Date: 20100710
  Serious: Yes (Death, Life-Threatening, Hospitalization)
  Sender: FDA-Public Use
  Company Number: JP-ROCHE-686801

PATIENT
  Sex: Male
  Weight: 69 kg

DRUGS (8)
  1. AVASTIN [Suspect]
     Indication: LARGE INTESTINE CARCINOMA
     Route: 041
     Dates: start: 20100203, end: 20100203
  2. XELODA [Interacting]
     Indication: LARGE INTESTINE CARCINOMA
     Dosage: DRUG: XELODA 300
     Route: 048
     Dates: start: 20100203, end: 20100201
  3. WARFARIN [Interacting]
     Indication: LARGE INTESTINE CARCINOMA
     Route: 048
     Dates: start: 20061020, end: 20100215
  4. ELPLAT [Suspect]
     Indication: LARGE INTESTINE CARCINOMA
     Route: 041
     Dates: start: 20100203, end: 20100203
  5. VASOLAN [Concomitant]
     Route: 048
     Dates: start: 19970228, end: 20100217
  6. LASIX [Concomitant]
     Route: 048
     Dates: start: 20020115, end: 20100217
  7. ARTIST [Concomitant]
     Route: 048
     Dates: start: 20020807, end: 20100217
  8. CASODEX [Concomitant]
     Route: 048
     Dates: start: 20061010, end: 20100217

REACTIONS (10)
  - CEREBRAL INFARCTION [None]
  - DECREASED APPETITE [None]
  - DEHYDRATION [None]
  - DRUG INTERACTION [None]
  - ENTEROCOLITIS [None]
  - HAEMORRHAGE [None]
  - INTERNATIONAL NORMALISED RATIO INCREASED [None]
  - MYOCARDIAL INFARCTION [None]
  - PLATELET COUNT DECREASED [None]
  - WHITE BLOOD CELL COUNT DECREASED [None]
